FAERS Safety Report 24428593 (Version 1)
Quarter: 2024Q4

REPORT INFORMATION
  Report Type: Spontaneous
  Country: GB (occurrence: GB)
  Receive Date: 20241011
  Receipt Date: 20241011
  Transmission Date: 20250114
  Serious: Yes (Other)
  Sender: SANDOZ
  Company Number: None

PATIENT
  Age: 58 Year
  Sex: Male
  Weight: 75 kg

DRUGS (10)
  1. PIOGLITAZONE [Suspect]
     Active Substance: PIOGLITAZONE
     Indication: Diabetes mellitus
     Dosage: 15 MG, QD
     Route: 065
  2. ATORVASTATIN [Concomitant]
     Active Substance: ATORVASTATIN
     Indication: Ill-defined disorder
     Dosage: ONE TABLET TO BE TAKEN DAILY TO LOWER CHOLESTER...
     Route: 065
     Dates: start: 20230222
  3. EMPAGLIFLOZIN [Concomitant]
     Active Substance: EMPAGLIFLOZIN
     Indication: Ill-defined disorder
     Dosage: ONE TABLET TO BE TAKEN ONCE A DAY FOR DIABETES
     Route: 065
     Dates: start: 20230222
  4. MINERAL OIL\PETROLATUM\WAX, EMULSIFYING [Concomitant]
     Active Substance: MINERAL OIL\PETROLATUM\WAX, EMULSIFYING
     Indication: Ill-defined disorder
     Dosage: AS DIRECTED
     Route: 065
     Dates: start: 20230222
  5. GLICLAZIDE [Concomitant]
     Active Substance: GLICLAZIDE
     Indication: Ill-defined disorder
     Dosage: TWO TO BE TAKEN WITH BREAKFAST + EVENING MEAL
     Route: 065
     Dates: start: 20240726
  6. NITROGLYCERIN [Concomitant]
     Active Substance: NITROGLYCERIN
     Indication: Ill-defined disorder
     Dosage: USE ONE TO TWO SPRAYS UNDER THE TONGUE WHEN REQ...
     Route: 065
     Dates: start: 20240903, end: 20241003
  7. LISINOPRIL [Concomitant]
     Active Substance: LISINOPRIL
     Indication: Ill-defined disorder
     Dosage: ONE TABLET TO BE TAKEN ONCE A DAY TO REDUCE BL...
     Route: 065
     Dates: start: 20230222
  8. METFORMIN [Concomitant]
     Active Substance: METFORMIN HYDROCHLORIDE
     Indication: Ill-defined disorder
     Dosage: 2 TABLETS TWICE DAILY
     Route: 065
     Dates: start: 20230222
  9. PANTOPRAZOLE [Concomitant]
     Active Substance: PANTOPRAZOLE
     Indication: Ill-defined disorder
     Dosage: ONE OR TWO TO BE TAKEN EACH MORNING
     Route: 065
     Dates: start: 20230222
  10. PIOGLITAZONE [Concomitant]
     Active Substance: PIOGLITAZONE
     Indication: Ill-defined disorder
     Dosage: ONE TABLET TO BE TAKEN ONCE  A DAY FOR DIABETES
     Route: 065
     Dates: start: 20240627, end: 20240726

REACTIONS (1)
  - Palpitations [Recovered/Resolved]
